FAERS Safety Report 11491744 (Version 1)
Quarter: 2015Q3

REPORT INFORMATION
  Report Type: Spontaneous
  Country: US (occurrence: None)
  Receive Date: 20150909
  Receipt Date: 20150909
  Transmission Date: 20151125
  Serious: Yes (Hospitalization, Other)
  Sender: FDA-Public Use
  Company Number: None

PATIENT
  Age: 35 Year
  Sex: Female
  Weight: 108.86 kg

DRUGS (2)
  1. GABAPENTIN. [Concomitant]
     Active Substance: GABAPENTIN
  2. LYRICA [Suspect]
     Active Substance: PREGABALIN
     Indication: COMPLEX REGIONAL PAIN SYNDROME
     Dosage: 1 PILL
     Route: 048
     Dates: start: 20141103, end: 20150830

REACTIONS (9)
  - Syncope [None]
  - Fall [None]
  - Dizziness [None]
  - Head injury [None]
  - Abdominal pain [None]
  - Neuropathy peripheral [None]
  - White blood cell count increased [None]
  - Overdose [None]
  - Loss of consciousness [None]

NARRATIVE: CASE EVENT DATE: 20150830
